FAERS Safety Report 6896510-8 (Version None)
Quarter: 2010Q3

REPORT INFORMATION
  Report Type: 
  Country: None (occurrence: None)
  Receive Date: 20100802
  Receipt Date: 20090310
  Transmission Date: 20110219
  Serious: No
  Sender: FDA-Public Use
  Company Number: US-PFIZER INC-2009175960

PATIENT
  Sex: Female
  Weight: 67.131 kg

DRUGS (3)
  1. INSPRA [Suspect]
     Indication: HYPERTENSION
     Dosage: 25 MG, 1X/DAY
     Dates: start: 20090218
  2. TOPROL-XL [Concomitant]
     Dates: start: 20090101, end: 20090217
  3. ANTIGLAUCOMA PREPARATIONS AND MIOTICS [Concomitant]
     Indication: GLAUCOMA
     Dosage: UNK

REACTIONS (6)
  - BONE PAIN [None]
  - DIZZINESS [None]
  - FATIGUE [None]
  - HEADACHE [None]
  - LIMB DISCOMFORT [None]
  - NAUSEA [None]
